FAERS Safety Report 10652520 (Version 1)
Quarter: 2014Q4

REPORT INFORMATION
  Report Type: Spontaneous
  Country: US (occurrence: None)
  Receive Date: 20141212
  Receipt Date: 20141212
  Transmission Date: 20150529
  Serious: Yes (Hospitalization)
  Sender: FDA-Public Use
  Company Number: None

PATIENT
  Age: 70 Year
  Sex: Male
  Weight: 127.01 kg

DRUGS (12)
  1. MULTIVITAMIN [Concomitant]
     Active Substance: VITAMINS
  2. LIMBREL [Suspect]
     Active Substance: FLAVOCOXID
     Indication: OSTEOARTHRITIS
     Route: 048
     Dates: start: 20141011, end: 20141017
  3. GLIMEPIRIDE. [Concomitant]
     Active Substance: GLIMEPIRIDE
  4. COENZYME Q10 [Concomitant]
     Active Substance: UBIDECARENONE
  5. ARMOUR THYROID [Concomitant]
     Active Substance: THYROID, PORCINE\THYROID, UNSPECIFIED
  6. LOSARTAN AND HYDROCHLOROTHIAZIDE [Concomitant]
     Active Substance: HYDROCHLOROTHIAZIDE\LOSARTAN POTASSIUM
  7. OMEGA 3 FISH OIL [Concomitant]
     Active Substance: FISH OIL\OMEGA-3 FATTY ACIDS
  8. ASPIRIN. [Concomitant]
     Active Substance: ASPIRIN
  9. VITAMIN D [Concomitant]
     Active Substance: CHOLECALCIFEROL
  10. FINASTERIDE. [Concomitant]
     Active Substance: FINASTERIDE
  11. WARFARIN [Concomitant]
     Active Substance: WARFARIN
  12. ACETAMINOPHEN. [Concomitant]
     Active Substance: ACETAMINOPHEN

REACTIONS (6)
  - Chills [None]
  - Gait disturbance [None]
  - Confusional state [None]
  - Hypotension [None]
  - Pyrexia [None]
  - Chest pain [None]
